FAERS Safety Report 19770740 (Version 2)
Quarter: 2021Q3

REPORT INFORMATION
  Report Type: Spontaneous
  Country: US (occurrence: US)
  Receive Date: 20210831
  Receipt Date: 20210831
  Transmission Date: 20211014
  Serious: No
  Sender: FDA-Public Use
  Company Number: US-APELLIS-00798

PATIENT
  Age: 77 Year
  Sex: Female

DRUGS (2)
  1. EMPAVELI [Suspect]
     Active Substance: PEGCETACOPLAN
     Indication: PAROXYSMAL NOCTURNAL HAEMOGLOBINURIA
     Route: 058
     Dates: start: 20210608
  2. 4293475 (GLOBALC3MAR21): ULTOMIRIS [Concomitant]
     Indication: PRODUCT USED FOR UNKNOWN INDICATION
     Dates: end: 20210512

REACTIONS (2)
  - Fall [Recovering/Resolving]
  - Pain [Unknown]

NARRATIVE: CASE EVENT DATE: 20210609
